FAERS Safety Report 4522451-7 (Version None)
Quarter: 2004Q4

REPORT INFORMATION
  Report Type: 
  Country: None (occurrence: None)
  Receive Date: 20041207
  Receipt Date: 20041122
  Transmission Date: 20050328
  Serious: Yes (Other)
  Sender: FDA-Public Use
  Company Number: US_0411108166

PATIENT
  Sex: Female

DRUGS (1)
  1. STRATTERA [Suspect]
     Dosage: 60 MG DAY
     Dates: start: 20040427, end: 20040701

REACTIONS (3)
  - CHROMATURIA [None]
  - IRRITABILITY [None]
  - NEPHROLITHIASIS [None]
